FAERS Safety Report 8050759-X (Version None)
Quarter: 2012Q1

REPORT INFORMATION
  Report Type: 
  Country: None (occurrence: None)
  Receive Date: 20120117
  Receipt Date: 20120117
  Transmission Date: 20120608
  Serious: Yes (Other)
  Sender: FDA-Public Use
  Company Number: None

PATIENT
  Age: 42 Year
  Sex: Male
  Weight: 99.79 kg

DRUGS (2)
  1. CYMBALTA [Suspect]
     Indication: MYALGIA
  2. CYMBALTA [Suspect]
     Indication: DEPRESSION

REACTIONS (2)
  - PARTNER STRESS [None]
  - SEXUAL DYSFUNCTION [None]
